FAERS Safety Report 21652556 (Version 1)
Quarter: 2022Q4

REPORT INFORMATION
  Report Type: Spontaneous
  Country: None (occurrence: US)
  Receive Date: 20221128
  Receipt Date: 20221128
  Transmission Date: 20230113
  Serious: No
  Sender: FDA-Public Use
  Company Number: US-P+L Developments of Newyork Corporation-2135309

PATIENT

DRUGS (2)
  1. DOCOSANOL [Suspect]
     Active Substance: DOCOSANOL
     Indication: Skin ulcer
     Route: 065
  2. DOCOSANOL [Suspect]
     Active Substance: DOCOSANOL
     Route: 065

REACTIONS (3)
  - Drug ineffective [Unknown]
  - Skin ulcer [Unknown]
  - Disease progression [Unknown]
